FAERS Safety Report 7368317-9 (Version None)
Quarter: 2011Q1

REPORT INFORMATION
  Report Type: 
  Country: None (occurrence: None)
  Receive Date: 20110323
  Receipt Date: 20110311
  Transmission Date: 20110831
  Serious: Yes (Other)
  Sender: FDA-Public Use
  Company Number: US-PFIZER INC-2006031658

PATIENT
  Sex: Female

DRUGS (4)
  1. XANAX [Concomitant]
     Route: 065
  2. NEURONTIN [Suspect]
     Dosage: 300 MG, 1X/DAY
     Dates: start: 19990823
  3. NEURONTIN [Suspect]
     Indication: ILL-DEFINED DISORDER
     Dosage: 300 MG, 1X/DAY
     Dates: start: 19990827
  4. CELEXA [Concomitant]
     Route: 065

REACTIONS (1)
  - SUICIDAL IDEATION [None]
